FAERS Safety Report 9817999 (Version 1)
Quarter: 2014Q1

REPORT INFORMATION
  Report Type: Spontaneous
  Country: US (occurrence: None)
  Receive Date: 20140113
  Receipt Date: 20140113
  Transmission Date: 20141002
  Serious: No
  Sender: FDA-Public Use
  Company Number: None

PATIENT
  Age: 50 Year
  Sex: Female

DRUGS (1)
  1. CYMBALTA [Suspect]

REACTIONS (6)
  - Fatigue [None]
  - Asthma [None]
  - Sinusitis [None]
  - Hypotension [None]
  - Hypothyroidism [None]
  - Epinephrine decreased [None]
